FAERS Safety Report 17817703 (Version 2)
Quarter: 2020Q2

REPORT INFORMATION
  Report Type: Spontaneous
  Country: US (occurrence: US)
  Receive Date: 20200522
  Receipt Date: 20200618
  Transmission Date: 20200714
  Serious: Yes (Hospitalization, Other)
  Sender: FDA-Public Use
  Company Number: US-SAOL THERAPEUTICS-2020SAO00131

PATIENT
  Age: 71 Year
  Sex: Male
  Weight: 111.57 kg

DRUGS (17)
  1. DOCUSATE NA [Concomitant]
     Active Substance: DOCUSATE
     Dosage: 100 MG, 1X/DAY
     Route: 048
  2. FUROSEMIDE. [Concomitant]
     Active Substance: FUROSEMIDE
     Dosage: 20 MG, 2X/DAY
     Route: 048
  3. QUETIAPINE FUMARATE. [Concomitant]
     Active Substance: QUETIAPINE FUMARATE
     Dosage: 50 MG, 1X/DAY EVERY NIGHT FOR MOOD
     Route: 048
  4. LIORESAL [Suspect]
     Active Substance: BACLOFEN
     Indication: MUSCLE SPASTICITY
     Dosage: 1324.8 ?G, \DAY
     Route: 037
     Dates: start: 2007, end: 20200319
  5. DICLOFENAC NA 1% GEL [Concomitant]
     Dosage: 2 G, 1X/DAY AS NEEDED FOR PAIN, APPLY TO RIGHT ELBOW AND KNEE
     Route: 061
  6. LIORESAL [Suspect]
     Active Substance: BACLOFEN
     Dosage: 1324.8 ?G, \DAY
     Route: 037
     Dates: start: 20200319, end: 20200507
  7. LIDOCAINE PATCH [Concomitant]
     Active Substance: LIDOCAINE
     Dosage: 1 PATCH, 1X/DAY
  8. MICONAZOLE POWDER [Concomitant]
     Active Substance: MICONAZOLE
     Dosage: 1 DOSAGE UNITS, 2X/DAY; MODERATE AMOUNT EVERY AM AND AT BEDTIME 0900-2100 HOURS
     Route: 061
  9. ZINC OXIDE. [Concomitant]
     Active Substance: ZINC OXIDE
     Dosage: LIBERAL AMOUNT TOPICALLY ON SU-MO-TU-WE-TH-FR-SAAT 0900
     Route: 061
  10. HYDROPHILIC OINTMENT [Concomitant]
     Active Substance: HYDROPHILIC OINTMENT
     Dosage: LIBERAL AMOUNT TOPICALLY ON SU-MO-TU-WE-TH-FR-SA AT 0900 FRO DRY SKIN
     Route: 061
  11. SENNA [Concomitant]
     Active Substance: SENNA LEAF\SENNOSIDES\SENNOSIDES A AND B
     Dosage: 50 MG, 1X/DAY AT NOON
     Route: 048
  12. TRAZODONE [Concomitant]
     Active Substance: TRAZODONE HYDROCHLORIDE
     Dosage: 200 MG, AT BEDTIME AS NEEDED FOR SLEEP
     Route: 048
  13. ACETAMINOPHEN/HYDROCODONE [Concomitant]
     Active Substance: ACETAMINOPHEN\HYDROCODONE
     Dosage: 1 TABLETS, UP TO 4X/DAY; EVERY 6 HOURS AS NEEDED FOR SERVERE PAIN (PAIN SCALE 6-10)
     Route: 048
  14. BISACODYL (MAGIC BULLET) [Concomitant]
     Dosage: 10 MG, AS NEEDED AS A LAXIATIVE EVERY OTHER PM
     Route: 054
  15. LIORESAL [Suspect]
     Active Substance: BACLOFEN
     Dosage: 1324.8 ?G, \DAY
     Route: 037
     Dates: start: 20200507
  16. DULOXETINE. [Concomitant]
     Active Substance: DULOXETINE
     Dosage: 60 MG, 1X/DAY FOR PTSD/DEPRESSION/PAIN
     Route: 048
  17. MELATONIN [Concomitant]
     Active Substance: MELATONIN
     Dosage: 3 MG (CAP/TAB), 1X/DAY AT BEDTIME AS NEEDED FOR INSOMNIA
     Route: 048

REACTIONS (8)
  - Cellulitis [Unknown]
  - Device infusion issue [Unknown]
  - Gravitational oedema [Unknown]
  - Erythema [Unknown]
  - Drug withdrawal syndrome [Unknown]
  - Device failure [Not Recovered/Not Resolved]
  - Device dislocation [Unknown]
  - Encephalopathy [Unknown]

NARRATIVE: CASE EVENT DATE: 20200108
